FAERS Safety Report 14696409 (Version 1)
Quarter: 2018Q1

REPORT INFORMATION
  Report Type: Spontaneous
  Country: US (occurrence: US)
  Receive Date: 20180330
  Receipt Date: 20180330
  Transmission Date: 20180509
  Serious: No
  Sender: FDA-Public Use
  Company Number: US-SA-2017SA046593

PATIENT
  Age: 46 Year
  Sex: Female

DRUGS (1)
  1. ALLEGRA ALLERGY [Suspect]
     Active Substance: FEXOFENADINE HYDROCHLORIDE
     Indication: HYPERSENSITIVITY
     Dosage: TOOK 1 TABLET YESTERDAY
     Route: 048

REACTIONS (7)
  - Erythema [Unknown]
  - Insomnia [Unknown]
  - Skin fissures [Unknown]
  - Rhinorrhoea [Unknown]
  - Drug ineffective [Unknown]
  - Nasal congestion [Unknown]
  - Nasal discomfort [Unknown]

NARRATIVE: CASE EVENT DATE: 20170315
